FAERS Safety Report 15148199 (Version 1)
Quarter: 2018Q3

REPORT INFORMATION
  Report Type: Spontaneous
  Country: US (occurrence: US)
  Receive Date: 20180619
  Receipt Date: 20180619
  Transmission Date: 20181010
  Serious: No
  Sender: FDA-Public Use
  Company Number: None

PATIENT
  Age: 67 Year
  Sex: Female

DRUGS (10)
  1. ARMODAFINIL. [Concomitant]
     Active Substance: ARMODAFINIL
  2. ESZOPICLONE. [Concomitant]
     Active Substance: ESZOPICLONE
  3. OXCARBAZEPINE. [Concomitant]
     Active Substance: OXCARBAZEPINE
  4. VALSARTAN AND HYDROCHLOROTHIAZIDE [Concomitant]
     Active Substance: HYDROCHLOROTHIAZIDE\VALSARTAN
  5. FLUTICASONE. [Concomitant]
     Active Substance: FLUTICASONE
  6. PRAMIPEXOLE. [Concomitant]
     Active Substance: PRAMIPEXOLE
  7. AUSTEDO [Suspect]
     Active Substance: DEUTETRABENAZINE
     Route: 048
  8. CLONAZEPAM. [Concomitant]
     Active Substance: CLONAZEPAM
  9. AMLODIPINE [Concomitant]
     Active Substance: AMLODIPINE BESYLATE
  10. DULOXETINE. [Concomitant]
     Active Substance: DULOXETINE

REACTIONS (6)
  - Hyperhidrosis [None]
  - Restlessness [None]
  - Blood sodium decreased [None]
  - Nausea [None]
  - Akathisia [None]
  - Anxiety [None]

NARRATIVE: CASE EVENT DATE: 20180619
